FAERS Safety Report 5649524-X (Version None)
Quarter: 2008Q1

REPORT INFORMATION
  Report Type: 
  Country: None (occurrence: None)
  Receive Date: 20080303
  Receipt Date: 20080303
  Transmission Date: 20080703
  Serious: Yes (Other)
  Sender: FDA-Public Use
  Company Number: None

PATIENT
  Sex: Female
  Weight: 74.8435 kg

DRUGS (1)
  1. FENTANYL TRANSDERMAL SYSTEM [Suspect]
     Indication: PAIN
     Dosage: 25 MCG/HR 1 PATCH EVERY 72 H CUTANEOUS
     Route: 003
     Dates: start: 20080121, end: 20080226

REACTIONS (4)
  - ANOREXIA [None]
  - DEPRESSION [None]
  - NAUSEA [None]
  - WEIGHT DECREASED [None]
